FAERS Safety Report 6010200-5 (Version None)
Quarter: 2008Q4

REPORT INFORMATION
  Report Type: 
  Country: None (occurrence: None)
  Receive Date: 20081218
  Receipt Date: 20071106
  Transmission Date: 20090506
  Serious: No
  Sender: FDA-Public Use
  Company Number: A0691743A

PATIENT
  Age: 55 Year
  Sex: Female

DRUGS (1)
  1. FLONASE [Suspect]
     Indication: MULTIPLE ALLERGIES
     Dosage: 2SPR TWICE PER DAY
     Route: 045
     Dates: start: 19920101, end: 19970101

REACTIONS (2)
  - NASAL DISCOMFORT [None]
  - NASAL ULCER [None]
